FAERS Safety Report 4550867-1 (Version None)
Quarter: 2004Q4

REPORT INFORMATION
  Report Type: 
  Country: None (occurrence: None)
  Receive Date: 20041217
  Receipt Date: 20040901
  Transmission Date: 20050328
  Serious: No
  Sender: FDA-Public Use
  Company Number: 2004-BP-07617BP(0)

PATIENT
  Age: 64 Year
  Sex: Female
  Weight: 66.7 kg

DRUGS (6)
  1. SPIRIVA [Suspect]
     Indication: CHRONIC OBSTRUCTIVE AIRWAYS DISEASE
     Dosage: 18 MCG (18 MCG), IH
     Route: 055
     Dates: start: 20040630, end: 20040831
  2. COMBIVENT [Concomitant]
  3. OXYGEN (OXYGEN) [Concomitant]
  4. SEREVENT DISKUS (SALMETEROL XINAFOATE) [Concomitant]
  5. HYDROCHLOROTHIAZIDE [Concomitant]
  6. DUONEB [Concomitant]

REACTIONS (3)
  - ANGIONEUROTIC OEDEMA [None]
  - SWELLING FACE [None]
  - SWOLLEN TONGUE [None]
